FAERS Safety Report 8473141 (Version 3)
Quarter: 2013Q1

REPORT INFORMATION
  Report Type: Spontaneous
  Country: CO (occurrence: CO)
  Receive Date: 20120323
  Receipt Date: 20130214
  Transmission Date: 20140127
  Serious: Yes (Hospitalization, Other)
  Sender: FDA-Public Use
  Company Number: CO-AMGEN-COLCT2012003854

PATIENT
  Age: 58 Year
  Sex: Male

DRUGS (12)
  1. ENBREL [Suspect]
     Indication: RHEUMATOID ARTHRITIS
     Dosage: 50 MG, WEEKLY
     Route: 058
     Dates: start: 20100713, end: 201206
  2. THYROXIN [Concomitant]
     Indication: THYROID DISORDER
     Dosage: 50 MG, 1X/DAY
     Route: 065
  3. PREDNISOLONE [Concomitant]
     Indication: PAIN
     Dosage: 10 MG, 2X/DAY
     Route: 048
     Dates: start: 2003
  4. PREDNISOLONE [Concomitant]
     Indication: RHEUMATOID ARTHRITIS
     Dosage: 50 MG, 1X/DAY
  5. PREDNISOLONE [Concomitant]
     Dosage: UNK
  6. ARAVA [Concomitant]
     Indication: MUSCULOSKELETAL STIFFNESS
     Dosage: 20 MG, 1X/DAY
  7. METHOTREXATE [Concomitant]
     Indication: RHEUMATOID ARTHRITIS
     Dosage: 2.5 MG, 4 TABLETS PER WEEK
  8. CALCIUM [Concomitant]
     Indication: OSTEOPENIA
     Dosage: UNK, PER DAY
  9. FOLIC ACID [Concomitant]
     Dosage: 1 TABLET PER DAY
  10. IBUPROFEN [Concomitant]
     Dosage: UNK, AS NEEDED
  11. DOLEX                              /00020001/ [Concomitant]
     Indication: PAIN
     Dosage: 500 MG, AS NEEDED
  12. SULFASALAZINE [Concomitant]
     Dosage: UNK

REACTIONS (13)
  - Thyroid disorder [Recovered/Resolved]
  - Joint swelling [Recovering/Resolving]
  - Pain [Recovering/Resolving]
  - Inflammation [Recovering/Resolving]
  - Mycobacterium tuberculosis complex test positive [Recovered/Resolved]
  - Pyrexia [Recovered/Resolved]
  - Rheumatoid arthritis [Recovered/Resolved]
  - Immune system disorder [Recovered/Resolved]
  - Increased upper airway secretion [Recovered/Resolved]
  - Cough [Recovered/Resolved]
  - Lung disorder [Recovered/Resolved]
  - Amnesia [Recovered/Resolved]
  - Influenza [Recovered/Resolved]
